FAERS Safety Report 7475870-3 (Version None)
Quarter: 2011Q2

REPORT INFORMATION
  Report Type: 
  Country: None (occurrence: None)
  Receive Date: 20110504
  Receipt Date: 20110419
  Transmission Date: 20111010
  Serious: Yes (Life-Threatening, Hospitalization, Other)
  Sender: FDA-Public Use
  Company Number: 1000020505

PATIENT

DRUGS (1)
  1. DINOPROSTONE (DINOPROSTONE) (VAGINAL INSERT) [Suspect]
     Dosage: (10 MG, ONCE), TRANSPLACENTAL
     Route: 064
     Dates: start: 20110407, end: 20110407

REACTIONS (5)
  - APGAR SCORE LOW [None]
  - ABNORMAL LABOUR AFFECTING FOETUS [None]
  - CAESAREAN SECTION [None]
  - MATERNAL DRUGS AFFECTING FOETUS [None]
  - FOETAL HEART RATE DECELERATION [None]
